FAERS Safety Report 8966738 (Version 1)
Quarter: 2012Q4

REPORT INFORMATION
  Report Type: 
  Country: IT (occurrence: IT)
  Receive Date: 20121217
  Receipt Date: 20121217
  Transmission Date: 20130627
  Serious: Yes (Death, Hospitalization, Other)
  Sender: FDA-Public Use
  Company Number: IT-ROXANE LABORATORIES, INC.-2012-RO-02568RO

PATIENT
  Age: 46 Year
  Sex: Male

DRUGS (6)
  1. MERCAPTOPURINE [Suspect]
     Indication: CROHN^S DISEASE
  2. INFLIXIMAB [Suspect]
     Indication: CROHN^S DISEASE
  3. IDARUBICINE [Suspect]
     Indication: T-CELL LYMPHOMA
  4. VINCRISTINE [Suspect]
     Indication: T-CELL LYMPHOMA
  5. ASPARAGINASE [Suspect]
     Indication: T-CELL LYMPHOMA
  6. CORTICOSTEROIDS [Concomitant]
     Indication: PRECURSOR T-LYMPHOBLASTIC LYMPHOMA/LEUKAEMIA

REACTIONS (7)
  - Pneumonia bacterial [Fatal]
  - Acinetobacter infection [Fatal]
  - Precursor T-lymphoblastic lymphoma/leukaemia [Unknown]
  - Jaundice cholestatic [Recovered/Resolved]
  - Pericardial effusion [Unknown]
  - Pleural effusion [Unknown]
  - Cardiac tamponade [Unknown]
